FAERS Safety Report 20088590 (Version 2)
Quarter: 2021Q4

REPORT INFORMATION
  Report Type: Spontaneous
  Country: FR (occurrence: FR)
  Receive Date: 20211119
  Receipt Date: 20211203
  Transmission Date: 20220303
  Serious: Yes (Death, Other)
  Sender: FDA-Public Use
  Company Number: FR-TAKEDA-2021TUS073149

PATIENT
  Sex: Male
  Weight: 35 kg

DRUGS (1)
  1. ELAPRASE [Suspect]
     Active Substance: IDURSULFASE
     Indication: Product used for unknown indication
     Dosage: 18 MILLIGRAM, 1/WEEK
     Route: 065

REACTIONS (1)
  - Mucopolysaccharidosis II [Fatal]

NARRATIVE: CASE EVENT DATE: 20210303
